FAERS Safety Report 12686795 (Version 2)
Quarter: 2016Q3

REPORT INFORMATION
  Report Type: Report from Study
  Country: AR (occurrence: AR)
  Receive Date: 20160825
  Receipt Date: 20160825
  Transmission Date: 20161109
  Serious: Yes (Death, Hospitalization)
  Sender: FDA-Public Use
  Company Number: PHHY2016AR116705

PATIENT
  Age: 60 Year
  Sex: Male

DRUGS (5)
  1. INSULIN [Concomitant]
     Active Substance: INSULIN NOS
     Indication: PRODUCT USED FOR UNKNOWN INDICATION
     Route: 065
  2. ACIDO FOLICO//FOLIC ACID [Concomitant]
     Active Substance: FOLIC ACID
     Indication: PRODUCT USED FOR UNKNOWN INDICATION
     Route: 065
  3. VITAMINS NOS [Concomitant]
     Active Substance: VITAMINS
     Indication: PRODUCT USED FOR UNKNOWN INDICATION
     Route: 065
  4. AZACITIDINE. [Concomitant]
     Active Substance: AZACITIDINE
     Indication: PRODUCT USED FOR UNKNOWN INDICATION
     Dosage: 1 DF, QMO
     Route: 065
  5. EXJADE [Suspect]
     Active Substance: DEFERASIROX
     Indication: MYELODYSPLASTIC SYNDROME
     Dosage: UNK
     Route: 065
     Dates: start: 20160416, end: 201606

REACTIONS (5)
  - Myelodysplastic syndrome [Fatal]
  - Pneumonia [Recovered/Resolved]
  - Pneumonia [Fatal]
  - Disease progression [Fatal]
  - Decreased immune responsiveness [Fatal]

NARRATIVE: CASE EVENT DATE: 201606
